FAERS Safety Report 7331420-3 (Version None)
Quarter: 2011Q1

REPORT INFORMATION
  Report Type: 
  Country: None (occurrence: None)
  Receive Date: 20110304
  Receipt Date: 20110228
  Transmission Date: 20110831
  Serious: Yes (Death, Life-Threatening)
  Sender: FDA-Public Use
  Company Number: JP-PFIZER INC-2011023552

PATIENT
  Age: 68 Year
  Sex: Female
  Weight: 58 kg

DRUGS (4)
  1. SUNITINIB MALATE [Suspect]
     Indication: RENAL CELL CARCINOMA
     Dosage: 25 MG, 1X/DAY
     Route: 048
     Dates: start: 20101220, end: 20110112
  2. CALONAL [Concomitant]
     Indication: BONE PAIN
     Dosage: 400 MG, 2X/DAY
     Dates: start: 20110107
  3. TRAMAL [Suspect]
     Indication: BONE PAIN
     Dosage: 25 MG, 4X/DAY
     Route: 048
     Dates: start: 20110110
  4. CRAVIT [Concomitant]
     Indication: ARTHRITIS INFECTIVE
     Dosage: 500 MG, 1X/DAY
     Route: 048
     Dates: start: 20110105, end: 20110113

REACTIONS (7)
  - NEUTROPENIA [None]
  - THROMBOCYTOPENIA [None]
  - METASTASIS [None]
  - DISSEMINATED INTRAVASCULAR COAGULATION [None]
  - RENAL CELL CARCINOMA [None]
  - MALAISE [None]
  - DISEASE PROGRESSION [None]
